FAERS Safety Report 18014008 (Version 1)
Quarter: 2020Q3

REPORT INFORMATION
  Report Type: Spontaneous
  Country: JP (occurrence: JP)
  Receive Date: 20200713
  Receipt Date: 20200713
  Transmission Date: 20201103
  Serious: Yes (Hospitalization)
  Sender: FDA-Public Use
  Company Number: JP-JNJFOC-20200701721

PATIENT

DRUGS (1)
  1. XARELTO [Suspect]
     Active Substance: RIVAROXABAN
     Indication: VENOUS THROMBOSIS
     Dosage: BID, 082
     Route: 048

REACTIONS (2)
  - Hospitalisation [Unknown]
  - Inappropriate schedule of product administration [Unknown]
